FAERS Safety Report 14782110 (Version 1)
Quarter: 2018Q2

REPORT INFORMATION
  Report Type: Spontaneous
  Country: FR (occurrence: FR)
  Receive Date: 20180420
  Receipt Date: 20180420
  Transmission Date: 20180711
  Serious: Yes (Hospitalization)
  Sender: FDA-Public Use
  Company Number: FR-TEVA-2018-FR-882515

PATIENT
  Age: 53 Year
  Sex: Male
  Weight: 87 kg

DRUGS (6)
  1. VANCOMYCINE [Concomitant]
     Active Substance: VANCOMYCIN
     Indication: OSTEITIS
     Route: 042
  2. CEFAZOLINE [Concomitant]
     Active Substance: CEFAZOLIN SODIUM
     Indication: OSTEITIS
     Dosage: 8 GRAM DAILY;
     Route: 042
  3. OFLOXACIN. [Suspect]
     Active Substance: OFLOXACIN
     Indication: OSTEITIS
     Route: 048
  4. LOVENOX [Concomitant]
     Active Substance: ENOXAPARIN SODIUM
     Indication: THROMBOSIS PROPHYLAXIS
     Dosage: .4 ML DAILY;
     Route: 058
  5. CEFEPIME [Concomitant]
     Active Substance: CEFEPIME HYDROCHLORIDE
     Indication: OSTEITIS
     Dosage: 1000 MILLIGRAM DAILY;
     Route: 042
  6. CEFOXITIN [Suspect]
     Active Substance: CEFOXITIN SODIUM
     Indication: OSTEITIS
     Dosage: 6 GRAM DAILY; 4X/JOUR PUIS 3X/JOUR
     Route: 042

REACTIONS (1)
  - Hepatocellular injury [Recovering/Resolving]
